FAERS Safety Report 26076377 (Version 1)
Quarter: 2025Q4

REPORT INFORMATION
  Report Type: Spontaneous
  Country: TW (occurrence: TW)
  Receive Date: 20251121
  Receipt Date: 20251121
  Transmission Date: 20260118
  Serious: Yes (Death, Other)
  Sender: FRESENIUS KABI
  Company Number: TW-FreseniusKabi-FK202515481

PATIENT
  Age: 7 Year
  Sex: Female
  Weight: 13.3 kg

DRUGS (9)
  1. PROPOFOL [Suspect]
     Active Substance: PROPOFOL
     Indication: Induction of anaesthesia
     Dosage: DOSE: 60 MG/ST?PROPOFOL 30+30MG WAS GIVEN FOR INDUCTION.
     Route: 042
     Dates: start: 20250819, end: 20250819
  2. PROPOFOL [Suspect]
     Active Substance: PROPOFOL
     Indication: Joint dislocation reduction
  3. NIMBEX [Suspect]
     Active Substance: CISATRACURIUM BESYLATE
     Indication: General anaesthesia
     Dosage: FOA: INJECTION?DOSE: 3 MG/ST?(IV AT 12:43)
     Route: 042
     Dates: start: 20250819, end: 20250819
  4. NIMBEX [Suspect]
     Active Substance: CISATRACURIUM BESYLATE
     Indication: Joint dislocation reduction
  5. SEVOFLURANE [Suspect]
     Active Substance: SEVOFLURANE
     Indication: General anaesthesia
     Dosage: (AT 12:38~13:48)
     Dates: start: 20250819, end: 20250819
  6. SEVOFLURANE [Suspect]
     Active Substance: SEVOFLURANE
     Indication: Joint dislocation reduction
  7. FENTANYL [Suspect]
     Active Substance: FENTANYL
     Indication: General anaesthesia
     Dosage: (IV AT 12:43)
     Route: 042
     Dates: start: 20250819, end: 20250819
  8. FENTANYL [Suspect]
     Active Substance: FENTANYL
     Indication: Joint dislocation reduction
  9. ELOSULFASE ALFA [Concomitant]
     Active Substance: ELOSULFASE ALFA
     Indication: Mucopolysaccharidosis IV
     Dates: start: 20201008

REACTIONS (2)
  - Acute respiratory failure [Fatal]
  - Cardiac arrest [Fatal]

NARRATIVE: CASE EVENT DATE: 20250819
